FAERS Safety Report 8313236-4 (Version None)
Quarter: 2012Q2

REPORT INFORMATION
  Report Type: 
  Country: None (occurrence: None)
  Receive Date: 20120426
  Receipt Date: 20120423
  Transmission Date: 20120825
  Serious: Yes (Other)
  Sender: FDA-Public Use
  Company Number: US-PFIZER INC-2012052697

PATIENT
  Sex: Female

DRUGS (15)
  1. AMITIZA [Concomitant]
     Dosage: 24 MCG, UNK
  2. SYMBICORT [Concomitant]
     Dosage: 80-4.5 MCG/ACTUATION INHALER
  3. CELEXA [Concomitant]
     Dosage: 40 MG TABLET, UNK
  4. POTASSIUM CHLORIDE [Concomitant]
     Dosage: 20 MEQ, UNK
  5. PSYLLIUM [Concomitant]
     Dosage: UNK
  6. SYNTHROID [Concomitant]
     Dosage: 100 MCG, UNK
  7. ZYRTEC [Concomitant]
     Dosage: 10 MG, UNK
  8. NEXIUM [Concomitant]
     Dosage: 40 MG, UNK
  9. VITAMIN D [Concomitant]
     Dosage: 5000 UNIT TAB
  10. CYMBALTA [Concomitant]
     Dosage: 60 MG, UNK
  11. TRICOR [Concomitant]
     Dosage: 145 MG, UNK
  12. LASIX [Concomitant]
     Dosage: 20 MG, UNK
  13. LYRICA [Suspect]
     Dosage: 50 MG, UNK
  14. ALBUTEROL [Concomitant]
     Dosage: 90 MCG/ACTUATION INHALER
  15. RISPERDAL [Concomitant]
     Dosage: 2 MG, UNK

REACTIONS (10)
  - BIPOLAR I DISORDER [None]
  - HYPOTHYROIDISM [None]
  - OEDEMA PERIPHERAL [None]
  - VITAMIN B12 DEFICIENCY [None]
  - DEPRESSION [None]
  - NEUROPATHY PERIPHERAL [None]
  - OBESITY [None]
  - CHRONIC OBSTRUCTIVE PULMONARY DISEASE [None]
  - GASTROOESOPHAGEAL REFLUX DISEASE [None]
  - RHINITIS ALLERGIC [None]
